FAERS Safety Report 11221528 (Version 6)
Quarter: 2025Q4

REPORT INFORMATION
  Report Type: Spontaneous
  Country: EU (occurrence: EU)
  Receive Date: 20150626
  Receipt Date: 20251222
  Transmission Date: 20260117
  Serious: Yes (Death, Other)
  Sender: INCYTE
  Company Number: EU-002147023-PHHY2015FR070941

PATIENT
  Age: 52 Year

DRUGS (4)
  1. RUXOLITINIB [Suspect]
     Active Substance: RUXOLITINIB
     Indication: Polycythaemia vera
     Dosage: 10 MG, BID
     Route: 065
  2. RUXOLITINIB [Suspect]
     Active Substance: RUXOLITINIB
     Dosage: 10 MG, BID
     Route: 065
  3. CYTARABINE [Suspect]
     Active Substance: CYTARABINE
     Indication: Polycythaemia vera
     Dosage: 200 MG/M2, QD
     Route: 065
  4. DAUNORUBICIN HYDROCHLORIDE [Suspect]
     Active Substance: DAUNORUBICIN HYDROCHLORIDE
     Indication: Polycythaemia vera
     Dosage: 60 MG/M2, QD
     Route: 065

REACTIONS (2)
  - Bone marrow failure [Fatal]
  - Intestinal obstruction [Unknown]
